FAERS Safety Report 24753588 (Version 1)
Quarter: 2024Q4

REPORT INFORMATION
  Report Type: Spontaneous
  Country: FR (occurrence: FR)
  Receive Date: 20241219
  Receipt Date: 20241219
  Transmission Date: 20250115
  Serious: Yes (Hospitalization)
  Sender: RANBAXY
  Company Number: FR-AFSSAPS-NC2024001390

PATIENT
  Age: 48 Year
  Sex: Male
  Weight: 71 kg

DRUGS (9)
  1. CLOPIDOGREL [Suspect]
     Active Substance: CLOPIDOGREL BISULFATE
     Indication: Thrombosis prophylaxis
     Dosage: 75 MILLIGRAM, DAILY
     Route: 048
     Dates: start: 20241024
  2. LANSOPRAZOLE [Suspect]
     Active Substance: LANSOPRAZOLE
     Indication: Gastrooesophageal reflux disease
     Dosage: 15 MILLIGRAM, DAILY
     Route: 048
     Dates: start: 20241019
  3. OMNIPAQUE [Suspect]
     Active Substance: IOHEXOL
     Indication: Computerised tomogram
     Dosage: 1 DOSAGE FORM, TOTAL 1
     Route: 040
     Dates: start: 20241018, end: 20241018
  4. OMNIPAQUE [Suspect]
     Active Substance: IOHEXOL
     Dosage: 1 DOSAGE FORM, TOTAL 1
     Route: 065
     Dates: start: 20241021, end: 20241021
  5. OMNIPAQUE [Suspect]
     Active Substance: IOHEXOL
     Dosage: 1 DOSAGE FORM, TOTAL 1
     Route: 065
     Dates: start: 20241023, end: 20241023
  6. KARDEGIC [Suspect]
     Active Substance: ASPIRIN DL-LYSINE
     Indication: Thrombosis prophylaxis
     Dosage: 75 MILLIGRAM, DAILY
     Route: 048
     Dates: start: 20241022
  7. LOVENOX [Suspect]
     Active Substance: ENOXAPARIN SODIUM
     Indication: Thrombosis prophylaxis
     Dosage: 8000 INTERNATIONAL UNIT, DAILY
     Route: 058
     Dates: start: 20241024
  8. ATORVASTATIN [Suspect]
     Active Substance: ATORVASTATIN
     Indication: Hyperlipidaemia
     Dosage: 40 MILLIGRAM, DAILY
     Route: 048
  9. ATORVASTATIN [Suspect]
     Active Substance: ATORVASTATIN
     Dosage: 80 MILLIGRAM, DAILY
     Route: 048
     Dates: start: 20241023

REACTIONS (1)
  - Rash maculo-papular [Not Recovered/Not Resolved]

NARRATIVE: CASE EVENT DATE: 20241028
